FAERS Safety Report 9130518 (Version 2)
Quarter: 2013Q1

REPORT INFORMATION
  Report Type: Spontaneous
  Country: US (occurrence: US)
  Receive Date: 20130301
  Receipt Date: 20130318
  Transmission Date: 20140127
  Serious: No
  Sender: FDA-Public Use
  Company Number: US-BIOGENIDEC-2013BI017206

PATIENT
  Age: 55 Year
  Sex: Female

DRUGS (1)
  1. TYSABRI [Suspect]
     Indication: MULTIPLE SCLEROSIS
     Route: 042
     Dates: start: 20130123

REACTIONS (6)
  - Toothache [Recovered/Resolved]
  - Swelling face [Unknown]
  - Weight increased [Recovered/Resolved]
  - Mobility decreased [Unknown]
  - Fatigue [Recovered/Resolved]
  - Headache [Recovered/Resolved]
